FAERS Safety Report 20591607 (Version 1)
Quarter: 2022Q1

REPORT INFORMATION
  Report Type: Other
  Country: CL (occurrence: None)
  Receive Date: 20220314
  Receipt Date: 20220314
  Transmission Date: 20220424
  Serious: Yes (Hospitalization, Other)
  Sender: FDA-Public Use
  Company Number: CL-ROCHE-2874647

PATIENT
  Age: 57 Year
  Sex: Male

DRUGS (2)
  1. ATEZOLIZUMAB [Suspect]
     Active Substance: ATEZOLIZUMAB
     Indication: Hepatic cancer
     Route: 041
  2. BEVACIZUMAB [Suspect]
     Active Substance: BEVACIZUMAB
     Indication: Hepatic cancer
     Route: 042

REACTIONS (9)
  - Bleeding varicose vein [Unknown]
  - Venous ligation [Unknown]
  - Upper gastrointestinal haemorrhage [Unknown]
  - Therapy partial responder [Unknown]
  - Varices oesophageal [Unknown]
  - Vomiting [Unknown]
  - Chalazion [Unknown]
  - Leukopenia [Unknown]
  - Varices oesophageal [Unknown]

NARRATIVE: CASE EVENT DATE: 20210901
